FAERS Safety Report 9456527 (Version 1)
Quarter: 2013Q3

REPORT INFORMATION
  Report Type: Report from Study
  Country: US (occurrence: US)
  Receive Date: 20130813
  Receipt Date: 20130813
  Transmission Date: 20140515
  Serious: Yes (Other)
  Sender: FDA-Public Use
  Company Number: US-EISAI INC-E2090-02800-SOL-US

PATIENT
  Age: 32 Year
  Sex: Female

DRUGS (3)
  1. ZONEGRAN [Suspect]
     Indication: EPILEPSY
     Route: 048
     Dates: end: 20130205
  2. ZONEGRAN [Suspect]
     Route: 048
     Dates: start: 20130206, end: 20130304
  3. ZONEGRAN [Suspect]
     Route: 048
     Dates: start: 20130305

REACTIONS (2)
  - Abortion spontaneous [Recovered/Resolved]
  - Exposure during pregnancy [None]
